FAERS Safety Report 9054015 (Version 1)
Quarter: 2013Q3

REPORT INFORMATION
  Report Type: Spontaneous
  Country: US (occurrence: None)
  Receive Date: 20130201
  Receipt Date: 20130201
  Transmission Date: 20140515
  Serious: Yes (Hospitalization)
  Sender: FDA-Public Use
  Company Number: None

PATIENT
  Age: 85 Year
  Sex: Male
  Weight: 104.78 kg

DRUGS (8)
  1. GEMZAR [Suspect]
     Indication: CHOLANGIOCARCINOMA
     Route: 042
     Dates: start: 20121011, end: 20121024
  2. GEMZAR [Suspect]
     Indication: METASTASIS
     Route: 042
     Dates: start: 20121011, end: 20121024
  3. ERLOTINIB [Suspect]
     Indication: CHOLANGIOCARCINOMA
     Route: 042
     Dates: start: 20121011
  4. ERLOTINIB [Suspect]
     Indication: METASTASIS
     Route: 042
     Dates: start: 20121011
  5. ONDANSETRON [Concomitant]
  6. PROCHLORPERAZINE MALEATC [Concomitant]
  7. PHENERGAN [Concomitant]
  8. LORAZEPAM [Concomitant]

REACTIONS (3)
  - Fatigue [None]
  - Nausea [None]
  - Dermatitis acneiform [None]
